FAERS Safety Report 10560649 (Version 1)
Quarter: 2014Q4

REPORT INFORMATION
  Report Type: Spontaneous
  Country: US (occurrence: US)
  Receive Date: 20141103
  Receipt Date: 20141103
  Transmission Date: 20150529
  Serious: No
  Sender: FDA-Public Use
  Company Number: US-PFIZER INC-2014301546

PATIENT
  Age: 58 Year
  Sex: Female

DRUGS (1)
  1. XELJANZ [Suspect]
     Active Substance: TOFACITINIB CITRATE
     Indication: RHEUMATOID ARTHRITIS
     Dosage: 5 MG, 2X/DAY, BY MOUTH
     Route: 048
     Dates: start: 201401, end: 201407

REACTIONS (3)
  - Drug ineffective [Unknown]
  - Myositis [Unknown]
  - Pain [Unknown]

NARRATIVE: CASE EVENT DATE: 201407
